FAERS Safety Report 14052447 (Version 3)
Quarter: 2017Q4

REPORT INFORMATION
  Report Type: Spontaneous
  Country: DK (occurrence: DK)
  Receive Date: 20171006
  Receipt Date: 20171229
  Transmission Date: 20180321
  Serious: Yes (Life-Threatening)
  Sender: FDA-Public Use
  Company Number: DK-AUROBINDO-AUR-APL-2017-41443

PATIENT
  Age: 76 Year
  Sex: Female

DRUGS (3)
  1. ACLASTA [Suspect]
     Active Substance: ZOLEDRONIC ACID
     Indication: OSTEOPOROSIS
     Route: 065
  2. ALENDRONIC ACID [Suspect]
     Active Substance: ALENDRONIC ACID
     Indication: OSTEOPOROSIS
     Dosage: UNK
     Route: 065
     Dates: start: 2008
  3. ACLASTA [Suspect]
     Active Substance: ZOLEDRONIC ACID
     Dosage: 5 MG, UNK
     Route: 065
     Dates: start: 20170523, end: 20170523

REACTIONS (16)
  - Blood calcium increased [Unknown]
  - Pain in extremity [Unknown]
  - Pelvic pain [Unknown]
  - Abdominal pain upper [Not Recovered/Not Resolved]
  - Tremor [Unknown]
  - Headache [Unknown]
  - Dizziness [Not Recovered/Not Resolved]
  - Hypersensitivity [Unknown]
  - Back pain [Unknown]
  - Muscle spasms [Unknown]
  - Blood sodium decreased [Recovering/Resolving]
  - Insomnia [Not Recovered/Not Resolved]
  - Hyponatraemia [Unknown]
  - Feeling abnormal [Recovering/Resolving]
  - Arthralgia [Unknown]
  - Vision blurred [Unknown]

NARRATIVE: CASE EVENT DATE: 201705
